FAERS Safety Report 4741443-6 (Version None)
Quarter: 2005Q3

REPORT INFORMATION
  Report Type: 
  Country: None (occurrence: None)
  Receive Date: 20050808
  Receipt Date: 20050729
  Transmission Date: 20060218
  Serious: Yes (Hospitalization, Other)
  Sender: FDA-Public Use
  Company Number: 2005109269

PATIENT
  Age: 68 Year
  Sex: Female

DRUGS (2)
  1. NEURONTIN [Suspect]
     Indication: TRIGEMINAL NEURALGIA
     Dosage: 1500 MG (300 MG, 3 IN 1 D), ORAL
     Route: 048
     Dates: start: 19990501
  2. GABAPENTIN [Suspect]
     Indication: TRIGEMINAL NEURALGIA
     Dates: start: 20050101

REACTIONS (4)
  - BREAST CANCER FEMALE [None]
  - CONDITION AGGRAVATED [None]
  - OVARIAN CYST [None]
  - TRIGEMINAL NEURALGIA [None]
